FAERS Safety Report 16926877 (Version 1)
Quarter: 2019Q4

REPORT INFORMATION
  Report Type: Spontaneous
  Country: NL (occurrence: NL)
  Receive Date: 20191016
  Receipt Date: 20191016
  Transmission Date: 20200122
  Serious: Yes (Disabling)
  Sender: FDA-Public Use
  Company Number: PHHY2019NL222466

PATIENT
  Sex: Female

DRUGS (2)
  1. LEVOTHYROXINE. [Concomitant]
     Active Substance: LEVOTHYROXINE
     Indication: PRODUCT USED FOR UNKNOWN INDICATION
     Dosage: 50 UG, QD
     Route: 065
  2. HYRIMOZ [Suspect]
     Active Substance: ADALIMUMAB-ADAZ
     Indication: HIDRADENITIS
     Dosage: 40 MG, QW
     Route: 058
     Dates: start: 20181228, end: 20190926

REACTIONS (4)
  - Concomitant disease aggravated [Not Recovered/Not Resolved]
  - Weight increased [Unknown]
  - Hypoacusis [Not Recovered/Not Resolved]
  - Drug ineffective [Unknown]
